FAERS Safety Report 5691311-0 (Version None)
Quarter: 2008Q2

REPORT INFORMATION
  Report Type: 
  Country: None (occurrence: None)
  Receive Date: 20080402
  Receipt Date: 20080331
  Transmission Date: 20081010
  Serious: Yes (Hospitalization)
  Sender: FDA-Public Use
  Company Number: LT-BRISTOL-MYERS SQUIBB COMPANY-14124499

PATIENT
  Age: 73 Year
  Sex: Male

DRUGS (1)
  1. ACETYLCYSTEINE [Suspect]
     Route: 048

REACTIONS (1)
  - STATUS ASTHMATICUS [None]
